FAERS Safety Report 7137799-X (Version None)
Quarter: 2010Q4

REPORT INFORMATION
  Report Type: 
  Country: None (occurrence: None)
  Receive Date: 20101119
  Receipt Date: 20101105
  Transmission Date: 20110411
  Serious: Yes (Hospitalization)
  Sender: FDA-Public Use
  Company Number: 2010004374

PATIENT
  Age: 73 Year
  Sex: Male
  Weight: 92.4 kg

DRUGS (14)
  1. ERLOTINIB (ERLOTINIB) (TABLET) (ERLOTINIB) [Suspect]
     Indication: NON-SMALL CELL LUNG CANCER
     Dosage: ORAL
     Route: 048
     Dates: start: 20100913, end: 20101007
  2. DASATINIB [Suspect]
     Indication: NON-SMALL CELL LUNG CANCER
  3. ACYCLOVIR SODIUM [Concomitant]
  4. VITAMIN B12 [Concomitant]
  5. FISH OIL [Concomitant]
  6. FLUTICOSONE PROPIONATE [Concomitant]
  7. PREVACID [Concomitant]
  8. SIMVASTATIN [Concomitant]
  9. VITAMIN D [Concomitant]
  10. LISINOPRIL [Concomitant]
  11. NORVASC [Concomitant]
  12. ASPIRIN [Concomitant]
  13. MINOCYCLINE HCL [Concomitant]
  14. MEDROL DOSE PACK (METHYLPREDNISOLONE) [Concomitant]

REACTIONS (15)
  - ACUTE RESPIRATORY FAILURE [None]
  - ATRIAL FIBRILLATION [None]
  - BACK PAIN [None]
  - BLOOD GLUCOSE INCREASED [None]
  - CARDIAC TAMPONADE [None]
  - CHROMATURIA [None]
  - HAEMOGLOBIN DECREASED [None]
  - HYPONATRAEMIA [None]
  - LUNG ADENOCARCINOMA METASTATIC [None]
  - MALIGNANT NEOPLASM PROGRESSION [None]
  - PERICARDIAL EFFUSION [None]
  - PNEUMONIA [None]
  - RASH [None]
  - RENAL FAILURE ACUTE [None]
  - VENTRICULAR EXTRASYSTOLES [None]
